FAERS Safety Report 23150483 (Version 1)
Quarter: 2023Q4

REPORT INFORMATION
  Report Type: Report from Study
  Country: BR (occurrence: BR)
  Receive Date: 20231106
  Receipt Date: 20231106
  Transmission Date: 20240110
  Serious: Yes (Other)
  Sender: FDA-Public Use
  Company Number: BR-TAKEDA-2023TUS105780

PATIENT
  Sex: Male

DRUGS (3)
  1. HEMO-8R [Suspect]
     Active Substance: ANTIHEMOPHILIC FACTOR, HUMAN RECOMBINANT
     Indication: Factor VIII deficiency
     Dosage: 750 INTERNATIONAL UNIT
     Route: 042
     Dates: start: 20190921
  2. HEMO-8R [Suspect]
     Active Substance: ANTIHEMOPHILIC FACTOR, HUMAN RECOMBINANT
     Dosage: 1000 INTERNATIONAL UNIT
     Route: 042
  3. FEIBA NF [Suspect]
     Active Substance: ANTI-INHIBITOR COAGULANT COMPLEX
     Indication: Product used for unknown indication
     Dosage: UNK
     Route: 065
     Dates: start: 2020, end: 2023

REACTIONS (9)
  - Anti factor VIII antibody positive [Unknown]
  - Rhinitis allergic [Unknown]
  - Allergic sinusitis [Unknown]
  - Multiple allergies [Recovering/Resolving]
  - Limb mass [Recovering/Resolving]
  - Sensitivity to weather change [Unknown]
  - Limb injury [Recovering/Resolving]
  - Haematoma [Unknown]
  - Headache [Unknown]
